FAERS Safety Report 11645943 (Version 2)
Quarter: 2016Q2

REPORT INFORMATION
  Report Type: Spontaneous
  Country: US (occurrence: US)
  Receive Date: 20151020
  Receipt Date: 20160429
  Transmission Date: 20160815
  Serious: No
  Sender: FDA-Public Use
  Company Number: US-ROCHE-1600603

PATIENT
  Sex: Male
  Weight: 83.08 kg

DRUGS (1)
  1. ESBRIET [Suspect]
     Active Substance: PIRFENIDONE
     Indication: IDIOPATHIC PULMONARY FIBROSIS
     Route: 048
     Dates: start: 20150313

REACTIONS (11)
  - Malaise [Unknown]
  - Dizziness [Unknown]
  - Eye pruritus [Unknown]
  - Somnolence [Unknown]
  - Vision blurred [Unknown]
  - Feeling abnormal [Unknown]
  - Pruritus [Unknown]
  - Weight decreased [Unknown]
  - Decreased appetite [Unknown]
  - Dysgeusia [Unknown]
  - Fatigue [Unknown]
